FAERS Safety Report 14562293 (Version 1)
Quarter: 2018Q1

REPORT INFORMATION
  Report Type: Spontaneous
  Country: US (occurrence: US)
  Receive Date: 20180221
  Receipt Date: 20180221
  Transmission Date: 20180509
  Serious: Yes (Disabling)
  Sender: FDA-Public Use
  Company Number: None

PATIENT
  Age: 60 Year
  Sex: Female
  Weight: 64.8 kg

DRUGS (7)
  1. POTASSIUM [Concomitant]
     Active Substance: POTASSIUM
  2. GLUCOSAMINE [Concomitant]
     Active Substance: GLUCOSAMINE
  3. D [Concomitant]
  4. ACYCLAVOIR [Concomitant]
  5. LEVOFLOXACIN 750 MG [Suspect]
     Active Substance: LEVOFLOXACIN
     Indication: SINUSITIS
     Dosage: ?          QUANTITY:10 TABLET(S);?
     Route: 048
     Dates: start: 20180216, end: 20180216
  6. TRIAMTERENE HCTZ [Concomitant]
     Active Substance: HYDROCHLOROTHIAZIDE\TRIAMTERENE
  7. VITAMIN D [Concomitant]
     Active Substance: CHOLECALCIFEROL

REACTIONS (7)
  - Abdominal pain upper [None]
  - Dyskinesia [None]
  - Dizziness [None]
  - Nausea [None]
  - Retching [None]
  - Joint stiffness [None]
  - Blood pressure decreased [None]

NARRATIVE: CASE EVENT DATE: 20180216
